FAERS Safety Report 5086937-1 (Version None)
Quarter: 2006Q3

REPORT INFORMATION
  Report Type: 
  Country: None (occurrence: None)
  Receive Date: 20060818
  Receipt Date: 20060805
  Transmission Date: 20061208
  Serious: Yes (Other)
  Sender: FDA-Public Use
  Company Number: 2006096812

PATIENT
  Age: 78 Year
  Sex: Female
  Weight: 58.9676 kg

DRUGS (6)
  1. NORVASC [Suspect]
     Indication: HYPERTENSION
     Dosage: 2.5 MG (2.5 MG, 1 IN 1 D), ORAL
     Route: 048
  2. LYRICA [Suspect]
     Indication: NEUROPATHY PERIPHERAL
     Dosage: 150 MG (75 MG, 2 IN 1 D), ORAL; 225 MG (75 MG, 3 IN 1 D), ORAL
     Route: 048
     Dates: start: 20060101
  3. LYRICA [Suspect]
     Indication: NEUROPATHY PERIPHERAL
     Dosage: 150 MG (75 MG, 2 IN 1 D), ORAL; 225 MG (75 MG, 3 IN 1 D), ORAL
     Route: 048
     Dates: start: 20060711
  4. ESTRADIOL [Concomitant]
  5. LORAZEPAM [Concomitant]
  6. ATENOLOL [Concomitant]

REACTIONS (6)
  - CATARACT OPERATION [None]
  - MACULAR DEGENERATION [None]
  - NEUROPATHY PERIPHERAL [None]
  - SWELLING [None]
  - THERAPEUTIC RESPONSE DECREASED [None]
  - VISION BLURRED [None]
